FAERS Safety Report 23951957 (Version 1)
Quarter: 2024Q2

REPORT INFORMATION
  Report Type: Spontaneous
  Country: US (occurrence: None)
  Receive Date: 20240607
  Receipt Date: 20240607
  Transmission Date: 20240716
  Serious: Yes (Hospitalization)
  Sender: FDA-Public Use
  Company Number: None

PATIENT
  Age: 73 Year
  Sex: Female

DRUGS (1)
  1. REPATHA [Suspect]
     Active Substance: EVOLOCUMAB
     Indication: Product used for unknown indication
     Dosage: 140 MG Q 14 DAYS SUBCUTANEOUS
     Route: 058
     Dates: start: 2020, end: 20240607

REACTIONS (1)
  - Palliative care [None]

NARRATIVE: CASE EVENT DATE: 20240607
